FAERS Safety Report 9852301 (Version 1)
Quarter: 2014Q1

REPORT INFORMATION
  Report Type: Spontaneous
  Country: JP (occurrence: JP)
  Receive Date: 20140129
  Receipt Date: 20140129
  Transmission Date: 20141002
  Serious: Yes (Death)
  Sender: FDA-Public Use
  Company Number: JP-NOVOPROD-398798

PATIENT
  Age: 75 Year
  Sex: Male

DRUGS (3)
  1. NOVOSEVEN HI [Suspect]
     Indication: GASTROINTESTINAL HAEMORRHAGE
     Dosage: UNKNOWN
     Route: 042
     Dates: start: 20131227
  2. NOVOSEVEN HI [Suspect]
     Indication: ACQUIRED HAEMOPHILIA
  3. PREDONINE                          /00016201/ [Concomitant]
     Dosage: UNKNOWN
     Route: 065

REACTIONS (2)
  - Gastrointestinal haemorrhage [Fatal]
  - Condition aggravated [Fatal]
